FAERS Safety Report 9418343 (Version 1)
Quarter: 2013Q3

REPORT INFORMATION
  Report Type: Spontaneous
  Country: US (occurrence: US)
  Receive Date: 20130725
  Receipt Date: 20130725
  Transmission Date: 20140515
  Serious: No
  Sender: FDA-Public Use
  Company Number: US-B.I. PHARMACEUTICALS,INC./RIDGEFIELD-2013-BI-21392BP

PATIENT
  Age: 57 Year
  Sex: Female

DRUGS (2)
  1. SPIRIVA [Suspect]
     Indication: DYSPNOEA
     Dosage: 18 MCG
     Route: 055
     Dates: start: 20130715
  2. SPIRIVA [Suspect]
     Indication: LUNG NEOPLASM MALIGNANT

REACTIONS (2)
  - Incorrect route of drug administration [Recovered/Resolved]
  - Dyspnoea [Not Recovered/Not Resolved]
